FAERS Safety Report 12353111 (Version 2)
Quarter: 2016Q2

REPORT INFORMATION
  Report Type: Spontaneous
  Country: US (occurrence: US)
  Receive Date: 20160510
  Receipt Date: 20160609
  Transmission Date: 20160815
  Serious: Yes (Hospitalization, Other)
  Sender: FDA-Public Use
  Company Number: US-GILEAD-2016-0212826

PATIENT
  Age: 64 Year
  Sex: Male
  Weight: 87.98 kg

DRUGS (4)
  1. IMITREX [Concomitant]
     Active Substance: SUMATRIPTAN SUCCINATE
     Indication: MIGRAINE
     Dosage: 50 MG, UNK
     Route: 048
     Dates: start: 20160304
  2. TOPAMAX [Concomitant]
     Active Substance: TOPIRAMATE
     Indication: MIGRAINE
     Dosage: 25 MG, UNK
     Route: 048
     Dates: start: 20160304
  3. HARVONI [Suspect]
     Active Substance: LEDIPASVIR\SOFOSBUVIR
     Indication: HEPATITIS C
     Dosage: 1 DF, UNK
     Route: 048
     Dates: start: 20160109, end: 20160304
  4. PROSCAR [Concomitant]
     Active Substance: FINASTERIDE
     Indication: HYPERTENSION
     Dosage: 5 MG, UNK
     Route: 048
     Dates: start: 20160509

REACTIONS (9)
  - Acute kidney injury [Recovered/Resolved]
  - Hydronephrosis [Unknown]
  - Bladder outlet obstruction [Unknown]
  - Hyponatraemia [Recovered/Resolved]
  - Fluid overload [Unknown]
  - Benign prostatic hyperplasia [Recovered/Resolved]
  - Escherichia urinary tract infection [Unknown]
  - Iron deficiency anaemia [Unknown]
  - Platelet count decreased [Unknown]

NARRATIVE: CASE EVENT DATE: 20160504
